FAERS Safety Report 14757984 (Version 1)
Quarter: 2018Q2

REPORT INFORMATION
  Report Type: Report from Study
  Country: ES (occurrence: ES)
  Receive Date: 20180413
  Receipt Date: 20180413
  Transmission Date: 20180711
  Serious: Yes (Other)
  Sender: FDA-Public Use
  Company Number: ES-PFIZER INC-2018147590

PATIENT
  Age: 62 Year
  Sex: Female

DRUGS (16)
  1. LEUCOVORIN /00566701/ [Suspect]
     Active Substance: LEUCOVORIN
     Dosage: 588 MG, CYCLIC
     Route: 041
     Dates: start: 20160826, end: 20160826
  2. FORTASEC /00384301/ [Concomitant]
     Dosage: UNK
     Dates: start: 20160826
  3. LEUCOVORIN /00566701/ [Suspect]
     Active Substance: LEUCOVORIN
     Indication: COLORECTAL CANCER METASTATIC
     Dosage: 588 MG, CYCLIC
     Route: 041
     Dates: start: 20160210, end: 20160210
  4. AFLIBERCEPT [Suspect]
     Active Substance: AFLIBERCEPT
     Dosage: 258 MG, CYCLIC
     Route: 041
     Dates: start: 20160826, end: 20160826
  5. 5-FU /00098801/ [Suspect]
     Active Substance: FLUOROURACIL
     Indication: COLORECTAL CANCER METASTATIC
     Dosage: 2822 MG, CYCLIC
     Route: 041
     Dates: start: 20160210, end: 20160210
  6. RHINOMER [Concomitant]
     Indication: THERAPEUTIC PROCEDURE
     Dosage: UNK
     Dates: start: 20160401
  7. ENANTYUM [Concomitant]
     Active Substance: DEXKETOPROFEN TROMETAMOL
     Dosage: UNK
     Dates: start: 20160909
  8. 5-FU /00098801/ [Suspect]
     Active Substance: FLUOROURACIL
     Dosage: 470.4 MG, CYCLIC
     Route: 040
     Dates: start: 20160210, end: 20160210
  9. EUTIROX [Concomitant]
     Active Substance: LEVOTHYROXINE SODIUM
     Indication: THERAPEUTIC PROCEDURE
  10. RANITIDINE. [Concomitant]
     Active Substance: RANITIDINE
     Indication: PROPHYLAXIS
  11. IRINOTECAN HCL [Suspect]
     Active Substance: IRINOTECAN HYDROCHLORIDE
     Dosage: 171 MG, CYCLIC
     Route: 041
     Dates: start: 20160826, end: 20160826
  12. AFLIBERCEPT [Suspect]
     Active Substance: AFLIBERCEPT
     Indication: COLORECTAL CANCER METASTATIC
     Dosage: 344 MG, CYCLIC
     Route: 041
     Dates: start: 20160210, end: 20160210
  13. IRINOTECAN HCL [Suspect]
     Active Substance: IRINOTECAN HYDROCHLORIDE
     Indication: COLORECTAL CANCER METASTATIC
     Dosage: 211.7 MG, CYCLIC
     Route: 041
     Dates: start: 20160210, end: 20160210
  14. 5-FU /00098801/ [Suspect]
     Active Substance: FLUOROURACIL
     Dosage: 2286 MG, CYCLIC
     Route: 041
     Dates: start: 20160826, end: 20160826
  15. CANDESARTAN CILEXETIL AND HYDROCHLOROTHIAZIDE [Concomitant]
     Active Substance: CANDESARTAN CILEXETIL\HYDROCHLOROTHIAZIDE
     Indication: THERAPEUTIC PROCEDURE
  16. PARACETAMOL [Concomitant]
     Active Substance: ACETAMINOPHEN
     Indication: PROPHYLAXIS
     Dosage: UNK
     Dates: start: 20160316

REACTIONS (4)
  - Deep vein thrombosis [Recovered/Resolved]
  - Diarrhoea [Recovered/Resolved]
  - Proteinuria [Not Recovered/Not Resolved]
  - Anal fistula [Recovered/Resolved]

NARRATIVE: CASE EVENT DATE: 201608
